FAERS Safety Report 9719410 (Version 2)
Quarter: 2013Q4

REPORT INFORMATION
  Report Type: Report from Study
  Country: BE (occurrence: BE)
  Receive Date: 20131128
  Receipt Date: 20131226
  Transmission Date: 20140711
  Serious: Yes (Other)
  Sender: FDA-Public Use
  Company Number: BE-AMGEN-BELNI2013082776

PATIENT
  Age: 59 Year
  Sex: Male

DRUGS (7)
  1. XGEVA [Suspect]
     Indication: METASTASES TO BONE
     Dosage: 120 MG, Q4WK
     Route: 058
     Dates: start: 20120911
  2. DENOSUMAB [Suspect]
     Indication: PRODUCT USED FOR UNKNOWN INDICATION
     Dosage: UNK
     Route: 065
  3. ZOLADEX                            /00732101/ [Concomitant]
     Dosage: UNK
     Dates: start: 2010
  4. ANDROCUR [Concomitant]
     Dosage: UNK
     Dates: start: 2012
  5. DOCETAXEL [Concomitant]
     Dosage: UNK
     Dates: start: 201210
  6. PREDNISON [Concomitant]
  7. CASODEX [Concomitant]
     Dosage: UNK
     Dates: start: 2010

REACTIONS (1)
  - Osteonecrosis of jaw [Not Recovered/Not Resolved]
